FAERS Safety Report 9284208 (Version 1)
Quarter: 2013Q2

REPORT INFORMATION
  Report Type: Spontaneous
  Country: US (occurrence: US)
  Receive Date: 20130510
  Receipt Date: 20130510
  Transmission Date: 20140414
  Serious: Yes (Other)
  Sender: FDA-Public Use
  Company Number: US-ASTRAZENECA-2013SE31279

PATIENT
  Age: 76 Year
  Sex: Male

DRUGS (2)
  1. BRILINTA [Suspect]
     Indication: STENT PLACEMENT
     Route: 048
     Dates: start: 201303, end: 201304
  2. ASPIRIN [Suspect]
     Route: 065
     Dates: start: 201303

REACTIONS (1)
  - Gastrointestinal haemorrhage [Unknown]
